FAERS Safety Report 10039609 (Version 1)
Quarter: 2014Q1

REPORT INFORMATION
  Report Type: Spontaneous
  Country: US (occurrence: US)
  Receive Date: 20140326
  Receipt Date: 20140326
  Transmission Date: 20141002
  Serious: Yes (Hospitalization)
  Sender: FDA-Public Use
  Company Number: US-MYLANLABS-2014S1005943

PATIENT
  Age: 15 Year
  Sex: Male

DRUGS (1)
  1. IBUPROFEN [Suspect]
     Dosage: 1000MG 3-4 TIMES A DAY
     Route: 065

REACTIONS (7)
  - Peptic ulcer perforation [Recovered/Resolved]
  - Gastrointestinal fistula [Recovering/Resolving]
  - Liver abscess [Recovering/Resolving]
  - Drug abuse [Recovering/Resolving]
  - Fatigue [Recovered/Resolved]
  - Decreased appetite [Recovered/Resolved]
  - Weight decreased [Recovered/Resolved]
